FAERS Safety Report 10870545 (Version 1)
Quarter: 2015Q1

REPORT INFORMATION
  Report Type: Spontaneous
  Country: US (occurrence: None)
  Receive Date: 20150219
  Receipt Date: 20150219
  Transmission Date: 20150721
  Serious: Yes (Hospitalization, Other)
  Sender: FDA-Public Use
  Company Number: RAP-0005-2015

PATIENT
  Sex: Female
  Weight: 74.84 kg

DRUGS (2)
  1. CYSTARAN (CYSTEAMINE) [Concomitant]
  2. PROCYSBI DELAYED-RELEASE [Suspect]
     Active Substance: CYSTEAMINE BITARTRATE
     Indication: CYSTINOSIS
     Dosage: 1400 MG (700 MG, 1 IN 12 HR), ORAL
     Route: 048

REACTIONS (1)
  - Lymphoma [None]
